FAERS Safety Report 6985233-2 (Version None)
Quarter: 2010Q3

REPORT INFORMATION
  Report Type: 
  Country: None (occurrence: None)
  Receive Date: 20100913
  Receipt Date: 20100826
  Transmission Date: 20110219
  Serious: Yes (Other)
  Sender: FDA-Public Use
  Company Number: 2010BI030050

PATIENT
  Age: 42 Year
  Sex: Male

DRUGS (10)
  1. ZEVALIN [Suspect]
     Indication: FOLLICLE CENTRE LYMPHOMA, FOLLICULAR GRADE I, II, III STAGE I
     Dosage: 1413 MBQ; 1X; IV
     Route: 042
     Dates: start: 20091111, end: 20091118
  2. RITUXIMAB [Concomitant]
  3. URSO 250 [Concomitant]
  4. SOLU-CORTEF [Concomitant]
  5. RITUXIMAB [Concomitant]
  6. CYCLOPHOSPHAMIDE [Concomitant]
  7. DOXORUBICIN HYDROCHLORIDE [Concomitant]
  8. VINCRISTINE SULFATE [Concomitant]
  9. PREDNISOLONE [Concomitant]
  10. FLUDEOXYGLUCOSE [Concomitant]

REACTIONS (4)
  - HEPATIC STEATOSIS [None]
  - LIVER DISORDER [None]
  - PLATELET COUNT DECREASED [None]
  - WHITE BLOOD CELL COUNT DECREASED [None]
